FAERS Safety Report 7968728-4 (Version None)
Quarter: 2011Q4

REPORT INFORMATION
  Report Type: 
  Country: None (occurrence: None)
  Receive Date: 20111122
  Receipt Date: 20110810
  Transmission Date: 20120403
  Serious: No
  Sender: FDA-Public Use
  Company Number: PHHY2011US69029

PATIENT
  Age: 47 Year
  Sex: Female

DRUGS (1)
  1. GILENYA [Suspect]
     Indication: MULTIPLE SCLEROSIS RELAPSE
     Dosage: 0.5 MG, DAILY, ORAL
     Route: 048
     Dates: start: 20110722

REACTIONS (5)
  - DIZZINESS [None]
  - FATIGUE [None]
  - CONFUSIONAL STATE [None]
  - SOMNOLENCE [None]
  - HEADACHE [None]
